FAERS Safety Report 20029692 (Version 1)
Quarter: 2021Q4

REPORT INFORMATION
  Report Type: Spontaneous
  Country: US (occurrence: US)
  Receive Date: 20211103
  Receipt Date: 20211103
  Transmission Date: 20220304
  Serious: Yes (Other)
  Sender: FDA-Public Use
  Company Number: US-ADAMAS PHARMA, LLC-2021ADA02682

PATIENT
  Sex: Male

DRUGS (8)
  1. GOCOVRI [Suspect]
     Active Substance: AMANTADINE
     Indication: Dyskinesia
     Dosage: 274 MG, 1X/DAY AT BEDTIME
     Route: 048
     Dates: start: 20180507
  2. CINNAMON OIL [Concomitant]
     Active Substance: CINNAMON OIL
  3. COCONUT OIL [Concomitant]
     Active Substance: COCONUT OIL
  4. FISH OIL [Concomitant]
     Active Substance: FISH OIL
  5. MULTIVIATMIN/MINERALS [Concomitant]
  6. RYTARY [Concomitant]
     Active Substance: CARBIDOPA\LEVODOPA
  7. SINEMET [Concomitant]
     Active Substance: CARBIDOPA\LEVODOPA
  8. SUDAFED PE CONGESTION [Concomitant]
     Active Substance: PHENYLEPHRINE HYDROCHLORIDE

REACTIONS (1)
  - Cerebrovascular accident [Not Recovered/Not Resolved]
